FAERS Safety Report 21313726 (Version 1)
Quarter: 2022Q3

REPORT INFORMATION
  Report Type: Other
  Country: US (occurrence: US)
  Receive Date: 20220909
  Receipt Date: 20220909
  Transmission Date: 20221027
  Serious: No
  Sender: FDA-Public Use
  Company Number: US-LEADIANT BIOSCIENCES INC-2021STPI000341

PATIENT
  Sex: Female

DRUGS (1)
  1. MATULANE [Suspect]
     Active Substance: PROCARBAZINE HYDROCHLORIDE
     Indication: Follicular lymphoma
     Dosage: 50 MILLIGRAM, TAKE 4 CAPSULES  (200 MG TOTAL), DAILY ON DAYS 1-7 OF A 28 DAY CYCLE
     Route: 048
     Dates: start: 20211106

REACTIONS (1)
  - Nausea [Unknown]
